FAERS Safety Report 7096312-6 (Version None)
Quarter: 2010Q4

REPORT INFORMATION
  Report Type: 
  Country: None (occurrence: None)
  Receive Date: 20101111
  Receipt Date: 20080925
  Transmission Date: 20110411
  Serious: No
  Sender: FDA-Public Use
  Company Number: US-KINGPHARMUSA00001-K200801129

PATIENT
  Age: 62 Year
  Sex: Male
  Weight: 90.703 kg

DRUGS (4)
  1. ALTACE [Suspect]
     Indication: STENT PLACEMENT
     Dosage: 2.5 MG, QD
     Route: 048
     Dates: start: 20050101
  2. PLAVIX [Concomitant]
     Indication: CARDIAC DISORDER
     Dosage: UNK, QD
     Route: 048
     Dates: start: 20050101
  3. LIPITOR [Concomitant]
     Indication: CARDIAC DISORDER
     Dosage: UNK, QD
     Route: 048
     Dates: start: 20050101
  4. ASPIRIN [Concomitant]
     Indication: CARDIAC DISORDER
     Dosage: UNK, QD
     Route: 048
     Dates: start: 20050101

REACTIONS (1)
  - DIZZINESS [None]
